FAERS Safety Report 7821636-1 (Version None)
Quarter: 2011Q4

REPORT INFORMATION
  Report Type: 
  Country: None (occurrence: None)
  Receive Date: 20111018
  Receipt Date: 20110809
  Transmission Date: 20120403
  Serious: No
  Sender: FDA-Public Use
  Company Number: US-ASTRAZENECA-2011SE47934

PATIENT
  Age: 63 Year
  Sex: Female

DRUGS (3)
  1. SYMBICORT [Suspect]
     Dosage: 160/4.5 MCG, DAILY
     Route: 055
  2. PREDNISONE [Concomitant]
  3. WATER PILL [Concomitant]

REACTIONS (4)
  - DYSPNOEA [None]
  - SWELLING [None]
  - FLUID RETENTION [None]
  - ILL-DEFINED DISORDER [None]
